FAERS Safety Report 7880881-X (Version None)
Quarter: 2011Q4

REPORT INFORMATION
  Report Type: 
  Country: None (occurrence: None)
  Receive Date: 20111101
  Receipt Date: 20111024
  Transmission Date: 20120403
  Serious: No
  Sender: FDA-Public Use
  Company Number: US-B.I. PHARMACEUTICALS,INC./RIDGEFIELD-2011-BP-24878BP

PATIENT
  Sex: Male

DRUGS (3)
  1. FLOMAX [Suspect]
  2. LEVOTHYROXINE SODIUM [Concomitant]
     Indication: THYROID DISORDER
  3. ZYRTEC [Concomitant]
     Indication: HYPERSENSITIVITY

REACTIONS (3)
  - SYNCOPE [None]
  - INFLUENZA LIKE ILLNESS [None]
  - THINKING ABNORMAL [None]
